FAERS Safety Report 5220302-9 (Version None)
Quarter: 2006Q4

REPORT INFORMATION
  Report Type: 
  Country: None (occurrence: None)
  Receive Date: 20061201
  Receipt Date: 20060712
  Transmission Date: 20070319
  Serious: No
  Sender: FDA-Public Use
  Company Number: 2006PV017435

PATIENT
  Age: 73 Year
  Sex: Female
  Weight: 113.3993 kg

DRUGS (6)
  1. BYETTA [Suspect]
     Indication: DIABETES MELLITUS NON-INSULIN-DEPENDENT
     Dosage: 10 MCG; BID; SC, 5 MCG; BID; SC
     Route: 058
     Dates: start: 20060401, end: 20060101
  2. BYETTA [Suspect]
     Indication: DIABETES MELLITUS NON-INSULIN-DEPENDENT
     Dosage: 10 MCG; BID; SC, 5 MCG; BID; SC
     Route: 058
     Dates: start: 20060501
  3. LANTUS [Concomitant]
  4. AVANDIA [Concomitant]
  5. METFORMIN HCL [Concomitant]
  6. GLYBURIDE (MICRONIZED) [Concomitant]

REACTIONS (4)
  - AGEUSIA [None]
  - ANOREXIA [None]
  - BLOOD GLUCOSE INCREASED [None]
  - WEIGHT DECREASED [None]
